FAERS Safety Report 19396861 (Version 1)
Quarter: 2021Q2

REPORT INFORMATION
  Report Type: Spontaneous
  Country: ZA (occurrence: ZA)
  Receive Date: 20210609
  Receipt Date: 20210609
  Transmission Date: 20210717
  Serious: No
  Sender: FDA-Public Use
  Company Number: ZA-LUPIN PHARMACEUTICALS INC.-2021-08902

PATIENT
  Age: 41 Year
  Sex: Male

DRUGS (11)
  1. CLOFAZIMINE [Concomitant]
     Active Substance: CLOFAZIMINE
     Indication: TUBERCULOSIS
     Dosage: 100 MILLIGRAM, QD
     Route: 065
     Dates: start: 2019
  2. ETHAMBUTOL [Concomitant]
     Active Substance: ETHAMBUTOL HYDROCHLORIDE
     Indication: TUBERCULOSIS
     Dosage: 1.2 GRAM, QD
     Route: 065
     Dates: start: 2019
  3. BEDAQUILINE [Concomitant]
     Active Substance: BEDAQUILINE
     Dosage: 200 MILLIGRAM 3 DOSES EVERY WEEK
     Route: 065
  4. LINEZOLID. [Suspect]
     Active Substance: LINEZOLID
     Indication: TUBERCULOSIS
     Dosage: 600 MILLIGRAM, QD
     Route: 065
     Dates: start: 2019
  5. TENOFOVIR [Concomitant]
     Active Substance: TENOFOVIR
     Indication: HIV INFECTION
     Dosage: 300 MILLIGRAM
     Route: 065
     Dates: start: 2019
  6. LEVOFLOXACIN. [Concomitant]
     Active Substance: LEVOFLOXACIN
     Indication: TUBERCULOSIS
     Dosage: 1 GRAM, QD
     Route: 065
     Dates: start: 2019
  7. ISONIAZID. [Concomitant]
     Active Substance: ISONIAZID
     Indication: TUBERCULOSIS
     Dosage: 900 MILLIGRAM, QD
     Route: 065
     Dates: start: 2019
  8. NEVIRAPINE. [Concomitant]
     Active Substance: NEVIRAPINE
     Indication: HIV INFECTION
     Dosage: 200 MILLIGRAM
     Route: 065
     Dates: start: 2019
  9. EMTRICITABINE [Concomitant]
     Active Substance: EMTRICITABINE
     Indication: HIV INFECTION
     Dosage: 200 MILLIGRAM
     Route: 065
     Dates: start: 2019
  10. PYRAZINAMIDE. [Concomitant]
     Active Substance: PYRAZINAMIDE
     Indication: TUBERCULOSIS
     Dosage: 1.25 GRAM, QD
     Route: 065
     Dates: start: 2019
  11. BEDAQUILINE [Concomitant]
     Active Substance: BEDAQUILINE
     Indication: TUBERCULOSIS
     Dosage: 400 MILLIGRAM/2 WEEK; LOADING DOSE
     Route: 065
     Dates: start: 2019

REACTIONS (1)
  - Anaemia [Recovering/Resolving]

NARRATIVE: CASE EVENT DATE: 2019
